FAERS Safety Report 22916622 (Version 2)
Quarter: 2023Q4

REPORT INFORMATION
  Report Type: Spontaneous
  Country: CA (occurrence: CA)
  Receive Date: 20230907
  Receipt Date: 20231228
  Transmission Date: 20240110
  Serious: Yes (Other)
  Sender: FDA-Public Use
  Company Number: CA-PFIZER INC-202300216473

PATIENT
  Age: 55 Year
  Sex: Male
  Weight: 98 kg

DRUGS (2)
  1. RUXIENCE [Suspect]
     Active Substance: RITUXIMAB-PVVR
     Indication: Granulomatosis with polyangiitis
     Dosage: DAY1 AND 15 /DAY 1
     Route: 042
     Dates: start: 20230823
  2. RUXIENCE [Suspect]
     Active Substance: RITUXIMAB-PVVR
     Dosage: DAY1 AND 15 /DAY 15
     Route: 042
     Dates: start: 20230906

REACTIONS (8)
  - Stent placement [Unknown]
  - Diarrhoea [Unknown]
  - Chills [Unknown]
  - Piloerection [Unknown]
  - Feeling cold [Unknown]
  - Hypoaesthesia [Unknown]
  - Paraesthesia [Unknown]
  - Off label use [Unknown]

NARRATIVE: CASE EVENT DATE: 20230823
